FAERS Safety Report 5862558-5 (Version None)
Quarter: 2008Q3

REPORT INFORMATION
  Report Type: 
  Country: None (occurrence: None)
  Receive Date: 20080828
  Receipt Date: 20080819
  Transmission Date: 20090109
  Serious: Yes (Other)
  Sender: FDA-Public Use
  Company Number: US-JNJFOC-20080804374

PATIENT
  Sex: Female

DRUGS (4)
  1. REMICADE [Suspect]
     Indication: CROHN'S DISEASE
     Route: 042
  2. ASACOL [Concomitant]
     Indication: CROHN'S DISEASE
  3. ULTRAM [Concomitant]
     Indication: PAIN
  4. LOESTRIN 1.5/30 [Concomitant]
     Indication: CONTRACEPTION

REACTIONS (1)
  - HYPOAESTHESIA [None]
